FAERS Safety Report 4810407-6 (Version None)
Quarter: 2005Q4

REPORT INFORMATION
  Report Type: 
  Country: None (occurrence: None)
  Receive Date: 20051024
  Receipt Date: 20051007
  Transmission Date: 20060501
  Serious: Yes (Death, Hospitalization)
  Sender: FDA-Public Use
  Company Number: GBR-2005-0001928

PATIENT
  Age: 59 Year
  Sex: Male

DRUGS (6)
  1. SEVREDOL TABLETS 20 MG(MORPHINE SULFATE) IR TABLET [Suspect]
     Indication: BONE PAIN
     Dosage: 20 MG, DAILY, ORAL
     Route: 048
     Dates: start: 20050918
  2. ACYCLOVIR [Suspect]
     Indication: MUCOSAL INFLAMMATION
     Dosage: 500 MG, DAILY, INTRAVENOUS
     Route: 042
     Dates: start: 20050919, end: 20050927
  3. MORPHINE SULFATE [Suspect]
     Indication: BONE PAIN
     Dosage: 180 MG, DAILY, ORAL
     Route: 048
     Dates: start: 20050914, end: 20050918
  4. DURAGESIC-100 [Suspect]
     Indication: BONE PAIN
     Dosage: 75 MG, TOPICAL
     Route: 061
     Dates: start: 20050919
  5. ZELITREX (VALACICLOVIR) [Concomitant]
  6. MELPHALAN [Concomitant]

REACTIONS (11)
  - COMA [None]
  - DYSKINESIA [None]
  - ENCEPHALITIS TOXIC [None]
  - FEBRILE BONE MARROW APLASIA [None]
  - GRAND MAL CONVULSION [None]
  - MIOSIS [None]
  - MUCOSAL INFLAMMATION [None]
  - MULTIPLE DRUG OVERDOSE [None]
  - NUCLEAR MAGNETIC RESONANCE IMAGING BRAIN ABNORMAL [None]
  - RENAL IMPAIRMENT [None]
  - TONIC CLONIC MOVEMENTS [None]
